FAERS Safety Report 17274987 (Version 1)
Quarter: 2020Q1

REPORT INFORMATION
  Report Type: Spontaneous
  Country: ZA (occurrence: ZA)
  Receive Date: 20200116
  Receipt Date: 20200116
  Transmission Date: 20200409
  Serious: Yes (Other)
  Sender: FDA-Public Use
  Company Number: ZA-MACLEODS PHARMACEUTICALS US LTD-MAC2020024763

PATIENT

DRUGS (9)
  1. STAVUDINE. [Concomitant]
     Active Substance: STAVUDINE
     Dosage: 30 MILLIGRAM, BID (12 HOURLY)
     Route: 065
     Dates: start: 20050801
  2. LAMIVUDINE. [Concomitant]
     Active Substance: LAMIVUDINE
     Indication: HIV INFECTION WHO CLINICAL STAGE III
     Dosage: 150 MILLIGRAM, BID (12 HOURLY)
     Route: 065
     Dates: start: 20050510, end: 20050602
  3. NEVIRAPINE  200 MG [Suspect]
     Active Substance: NEVIRAPINE
     Dosage: 200 MILLIGRAM, BID (12 HOURLY)
     Route: 065
     Dates: end: 20050602
  4. VITAMIN B COMPLEX [Concomitant]
     Active Substance: CYANOCOBALAMIN\DEXPANTHENOL\NIACINAMIDE\PYRIDOXINE HYDROCHLORIDE\RIBOFLAVIN 5^-PHOSPHATE SODIUM\THIAMINE HYDROCHLORIDE\VITAMIN B COMPLEX
     Indication: PRODUCT USED FOR UNKNOWN INDICATION
     Dosage: 2 DOSAGE FORM, QD
     Route: 048
  5. EFAVIRENZ. [Suspect]
     Active Substance: EFAVIRENZ
     Indication: HIV INFECTION WHO CLINICAL STAGE III
     Dosage: 600 MILLIGRAM, QD
     Route: 065
     Dates: start: 20050801, end: 20050905
  6. NEVIRAPINE  200 MG [Suspect]
     Active Substance: NEVIRAPINE
     Indication: HIV INFECTION WHO CLINICAL STAGE III
     Dosage: 200 MILLIGRAM, QD
     Route: 065
     Dates: start: 20050510
  7. STAVUDINE. [Concomitant]
     Active Substance: STAVUDINE
     Indication: HIV INFECTION WHO CLINICAL STAGE III
     Dosage: 30 MILLIGRAM, BID (12 HOURLY)
     Route: 065
     Dates: start: 20050510, end: 20050602
  8. LAMIVUDINE. [Concomitant]
     Active Substance: LAMIVUDINE
     Dosage: 150 MILLIGRAM, BID (12 HOURLY)
     Route: 065
     Dates: start: 20050801
  9. COTRIMOXAZOLE [Concomitant]
     Active Substance: SULFAMETHOXAZOLE\TRIMETHOPRIM
     Indication: PRODUCT USED FOR UNKNOWN INDICATION
     Dosage: UNK,  800/160 MG, QD
     Route: 065

REACTIONS (2)
  - Autoimmune haemolytic anaemia [Recovered/Resolved]
  - Hypersensitivity [Recovered/Resolved]

NARRATIVE: CASE EVENT DATE: 20050602
